FAERS Safety Report 23618553 (Version 1)
Quarter: 2024Q1

REPORT INFORMATION
  Report Type: Spontaneous
  Country: US (occurrence: None)
  Receive Date: 20240311
  Receipt Date: 20240311
  Transmission Date: 20240409
  Serious: Yes (Disabling, Other)
  Sender: FDA-Public Use
  Company Number: None

PATIENT
  Age: 43 Year
  Sex: Female
  Weight: 99 kg

DRUGS (13)
  1. LEVAQUIN [Suspect]
     Active Substance: LEVOFLOXACIN
     Indication: Sinusitis
     Dosage: OTHER QUANTITY : 1 TABLET(S);?FREQUENCY : DAILY;?
     Route: 048
     Dates: start: 20240201, end: 20240210
  2. LABETALOL [Concomitant]
     Active Substance: LABETALOL\LABETALOL HYDROCHLORIDE
  3. SYNTHROID [Concomitant]
     Active Substance: LEVOTHYROXINE SODIUM
  4. WELLBUTRIN [Concomitant]
     Active Substance: BUPROPION HYDROCHLORIDE
  5. NEXIUM [Concomitant]
     Active Substance: ESOMEPRAZOLE MAGNESIUM
  6. HYDROCODONE [Concomitant]
     Active Substance: HYDROCODONE
  7. GABAPENTIN [Concomitant]
     Active Substance: GABAPENTIN
  8. TIZANIDINE [Concomitant]
     Active Substance: TIZANIDINE
  9. LORAZEPAM [Concomitant]
     Active Substance: LORAZEPAM
  10. Ankle brace [Concomitant]
  11. Once a Day Women^s multivitamin [Concomitant]
  12. ZINC [Concomitant]
     Active Substance: PYRITHIONE ZINC\ZINC\ZINC CHLORIDE
  13. IRON [Concomitant]
     Active Substance: IRON

REACTIONS (15)
  - Neuropathy peripheral [None]
  - Rash [None]
  - Anxiety [None]
  - Insomnia [None]
  - Heart rate increased [None]
  - Tendonitis [None]
  - Asthenia [None]
  - Gait disturbance [None]
  - Hypokinesia [None]
  - Gastrointestinal disorder [None]
  - Oral herpes [None]
  - Stress [None]
  - Myalgia [None]
  - Muscular weakness [None]
  - Pain [None]

NARRATIVE: CASE EVENT DATE: 20240201
